FAERS Safety Report 8198835-5 (Version None)
Quarter: 2012Q1

REPORT INFORMATION
  Report Type: 
  Country: None (occurrence: None)
  Receive Date: 20120309
  Receipt Date: 20120215
  Transmission Date: 20120608
  Serious: No
  Sender: FDA-Public Use
  Company Number: US-AMGEN-USASP2011012150

PATIENT
  Age: 76 Year
  Sex: Female
  Weight: 45.351 kg

DRUGS (4)
  1. METHOTREXATE [Concomitant]
  2. PROLIA [Suspect]
     Indication: OSTEOPOROSIS POSTMENOPAUSAL
     Dosage: 60 MG, Q6MO
     Route: 058
     Dates: start: 20111107
  3. PROLIA [Suspect]
     Dosage: 60 MG, Q6MO
     Route: 058
     Dates: start: 20100819
  4. PROLIA [Suspect]
     Dosage: 60 MG, QMO
     Route: 058
     Dates: start: 20110329

REACTIONS (1)
  - CHILLS [None]
